FAERS Safety Report 5119690-3 (Version None)
Quarter: 2006Q3

REPORT INFORMATION
  Report Type: 
  Country: None (occurrence: None)
  Receive Date: 20060928
  Receipt Date: 20060918
  Transmission Date: 20061208
  Serious: Yes (Other)
  Sender: FDA-Public Use
  Company Number: 2006112937

PATIENT
  Age: 64 Year
  Sex: Male
  Weight: 99.7913 kg

DRUGS (4)
  1. LIPITOR [Suspect]
     Indication: BLOOD CHOLESTEROL INCREASED
     Dosage: 1 IN 1 D
  2. NEURONTIN [Suspect]
     Indication: BACK PAIN
  3. REMERON [Concomitant]
  4. MORPHINE [Concomitant]

REACTIONS (1)
  - INTERVERTEBRAL DISC DEGENERATION [None]
